FAERS Safety Report 7041763-9 (Version None)
Quarter: 2010Q4

REPORT INFORMATION
  Report Type: 
  Country: None (occurrence: None)
  Receive Date: 20101013
  Receipt Date: 20100721
  Transmission Date: 20110411
  Serious: No
  Sender: FDA-Public Use
  Company Number: US-ASTRAZENECA-2010SE19762

PATIENT
  Sex: Male

DRUGS (4)
  1. SYMBICORT [Suspect]
     Dosage: 160/4.5, 2 PUFFS
     Route: 055
     Dates: start: 20090101
  2. SYMBICORT [Suspect]
     Dosage: 160/4.5, 2 PUFFS
     Route: 055
     Dates: start: 20100427
  3. ATENOLOL [Concomitant]
  4. IOPIDINE [Concomitant]

REACTIONS (4)
  - BRONCHIAL SECRETION RETENTION [None]
  - CHEST DISCOMFORT [None]
  - COUGH [None]
  - DYSPNOEA [None]
